FAERS Safety Report 8501044-0 (Version None)
Quarter: 2012Q3

REPORT INFORMATION
  Report Type: 
  Country: None (occurrence: None)
  Receive Date: 20120710
  Receipt Date: 20120706
  Transmission Date: 20120928
  Serious: No
  Sender: FDA-Public Use
  Company Number: US-TEVA-347318USA

PATIENT
  Sex: Female
  Weight: 57.204 kg

DRUGS (3)
  1. PLAN B ONE-STEP [Suspect]
     Indication: POST COITAL CONTRACEPTION
     Dosage: 1.5 MILLIGRAM;
     Route: 048
     Dates: start: 20120701, end: 20120701
  2. ORTHO TRI-CYCLEN LO [Concomitant]
     Indication: CONTRACEPTION
  3. ORTHO TRI-CYCLEN LO [Concomitant]
     Indication: ACNE

REACTIONS (1)
  - MENSTRUATION IRREGULAR [None]
